FAERS Safety Report 21342035 (Version 2)
Quarter: 2022Q3

REPORT INFORMATION
  Report Type: Other
  Country: US (occurrence: None)
  Receive Date: 20220916
  Receipt Date: 20220927
  Transmission Date: 20221026
  Serious: Yes (Hospitalization)
  Sender: FDA-Public Use
  Company Number: US-ROCHE-3103124

PATIENT
  Age: 2 Year
  Sex: Female
  Weight: 12.8 kg

DRUGS (6)
  1. EVRYSDI [Suspect]
     Active Substance: RISDIPLAM
     Indication: Spinal muscular atrophy
     Route: 048
     Dates: start: 202110
  2. EVRYSDI [Suspect]
     Active Substance: RISDIPLAM
     Route: 048
  3. ZYRTEC [Concomitant]
     Active Substance: CETIRIZINE HYDROCHLORIDE
     Indication: Seasonal allergy
     Route: 050
     Dates: start: 2020
  4. CIPRODEX (UNITED STATES) [Concomitant]
     Indication: Tracheitis
     Dates: start: 20220511
  5. TOBRAMYCIN [Concomitant]
     Active Substance: TOBRAMYCIN
     Route: 050
     Dates: start: 20220511
  6. MIRALAX [Concomitant]
     Active Substance: POLYETHYLENE GLYCOL 3350
     Indication: Constipation
     Dates: start: 2020

REACTIONS (6)
  - Weight decreased [Recovered/Resolved]
  - Gastric infection [Recovered/Resolved]
  - Vomiting [Recovered/Resolved]
  - Off label use [Unknown]
  - Viral infection [Recovered/Resolved]
  - Tracheitis [Recovered/Resolved]

NARRATIVE: CASE EVENT DATE: 20220508
